FAERS Safety Report 15784560 (Version 2)
Quarter: 2025Q4

REPORT INFORMATION
  Report Type: Spontaneous
  Country: US (occurrence: US)
  Receive Date: 20190103
  Receipt Date: 20251204
  Transmission Date: 20260118
  Serious: Yes (Other)
  Sender: ALKEM
  Company Number: None

PATIENT
  Age: 5 Decade
  Sex: Female

DRUGS (1)
  1. MYCOPHENOLATE MOFETIL [Suspect]
     Active Substance: MYCOPHENOLATE MOFETIL
     Indication: Vasculitis
     Dosage: 500 MG, BID
     Route: 048

REACTIONS (2)
  - Neutropenia [Recovered/Resolved]
  - Hypertransaminasaemia [Unknown]
